FAERS Safety Report 14732112 (Version 2)
Quarter: 2018Q2

REPORT INFORMATION
  Report Type: Spontaneous
  Country: FR (occurrence: FR)
  Receive Date: 20180409
  Receipt Date: 20180622
  Transmission Date: 20180711
  Serious: Yes (Other)
  Sender: FDA-Public Use
  Company Number: FR-ROCHE-2103014

PATIENT
  Age: 25 Year
  Sex: Female

DRUGS (3)
  1. RISPERIDONE. [Suspect]
     Active Substance: RISPERIDONE
     Indication: MENTAL DISORDER
     Dosage: MOST RECENT DOSE ON 12/FEB/2018
     Route: 048
     Dates: start: 20180208
  2. RISPERDAL [Suspect]
     Active Substance: RISPERIDONE
     Indication: MENTAL DISORDER
     Dosage: MOST RECENT DOSE ON 08/FEB/2018
     Route: 048
     Dates: start: 20180124
  3. VALIUM [Suspect]
     Active Substance: DIAZEPAM
     Indication: MENTAL DISORDER
     Dosage: UNIT DOSE: 45 [DRP], MOST RECENT DOSE ON 05/FEB/2018
     Route: 048
     Dates: start: 20180124

REACTIONS (2)
  - Alanine aminotransferase increased [Recovered/Resolved]
  - Band neutrophil count decreased [Recovered/Resolved]

NARRATIVE: CASE EVENT DATE: 20180212
